FAERS Safety Report 5774780-7 (Version None)
Quarter: 2008Q2

REPORT INFORMATION
  Report Type: 
  Country: None (occurrence: None)
  Receive Date: 20080612
  Receipt Date: 20080605
  Transmission Date: 20081010
  Serious: Yes (Death)
  Sender: FDA-Public Use
  Company Number: 163-21880-08040725

PATIENT
  Age: 66 Year
  Sex: Female

DRUGS (3)
  1. REVLIMID [Suspect]
     Indication: MULTIPLE MYELOMA
     Dosage: 10 MG, DAILY X21 DAYS, ORAL, 15 MG, DAILY X21 DAYS, ORAL, 25 MG, DAILY X21 DAYS, ORAL
     Route: 048
     Dates: start: 20070910, end: 20071001
  2. REVLIMID [Suspect]
     Indication: MULTIPLE MYELOMA
     Dosage: 10 MG, DAILY X21 DAYS, ORAL, 15 MG, DAILY X21 DAYS, ORAL, 25 MG, DAILY X21 DAYS, ORAL
     Route: 048
     Dates: start: 20071107, end: 20080101
  3. REVLIMID [Suspect]
     Indication: MULTIPLE MYELOMA
     Dosage: 10 MG, DAILY X21 DAYS, ORAL, 15 MG, DAILY X21 DAYS, ORAL, 25 MG, DAILY X21 DAYS, ORAL
     Route: 048
     Dates: start: 20080108, end: 20080301

REACTIONS (5)
  - DISEASE PROGRESSION [None]
  - HAEMOGLOBIN DECREASED [None]
  - MULTIPLE MYELOMA [None]
  - PLATELET COUNT DECREASED [None]
  - TOOTH ABSCESS [None]
